FAERS Safety Report 7372840-0 (Version None)
Quarter: 2011Q1

REPORT INFORMATION
  Report Type: 
  Country: None (occurrence: None)
  Receive Date: 20110324
  Receipt Date: 20110322
  Transmission Date: 20110831
  Serious: Yes (Other)
  Sender: FDA-Public Use
  Company Number: US-PFIZER INC-2011064218

PATIENT
  Sex: Female

DRUGS (1)
  1. ADVIL CONGESTION RELIEF [Suspect]
     Indication: NASAL CONGESTION
     Dosage: 200/10
     Route: 048
     Dates: start: 20110321, end: 20110321

REACTIONS (6)
  - INSOMNIA [None]
  - PAIN [None]
  - MUSCLE SPASMS [None]
  - FEELING HOT [None]
  - PALPITATIONS [None]
  - HYPOTENSION [None]
